FAERS Safety Report 8200838-9 (Version None)
Quarter: 2012Q1

REPORT INFORMATION
  Report Type: 
  Country: None (occurrence: None)
  Receive Date: 20120312
  Receipt Date: 20120228
  Transmission Date: 20120608
  Serious: No
  Sender: FDA-Public Use
  Company Number: US-B.I. PHARMACEUTICALS,INC./RIDGEFIELD-2012-BP-03763BP

PATIENT
  Sex: Female

DRUGS (9)
  1. PRADAXA [Suspect]
     Indication: CARDIAC ASSISTANCE DEVICE USER
     Dosage: 300 MG
     Route: 048
     Dates: start: 20111201
  2. CRESTOR [Concomitant]
     Indication: BLOOD CHOLESTEROL ABNORMAL
     Dosage: 10 MG
     Route: 048
  3. METOPROLOL SUCCINATE [Concomitant]
     Indication: HEART RATE IRREGULAR
     Dosage: 50 MG
     Route: 048
  4. ACIPHEX [Concomitant]
     Indication: OESOPHAGEAL DISORDER
     Dosage: 20 MG
     Route: 048
  5. NEURONTIN [Concomitant]
     Indication: HERPES ZOSTER
     Dosage: 300 MG
     Route: 048
  6. XANAX [Concomitant]
     Indication: ANXIETY
     Dosage: 0.5 MG
     Route: 048
  7. LISINOPRIL [Concomitant]
     Indication: HYPERTENSION
     Dosage: 5 MG
     Route: 048
     Dates: end: 20120225
  8. LOVAZA [Concomitant]
     Indication: PROPHYLAXIS
     Route: 048
  9. ASPIRIN [Concomitant]
     Indication: PROPHYLAXIS
     Dosage: 81 MG
     Route: 048

REACTIONS (3)
  - HYPOTENSION [None]
  - EPIGASTRIC DISCOMFORT [None]
  - MELAENA [None]
